FAERS Safety Report 11840305 (Version 1)
Quarter: 2015Q4

REPORT INFORMATION
  Report Type: Spontaneous
  Country: US (occurrence: None)
  Receive Date: 20151215
  Receipt Date: 20151215
  Transmission Date: 20160305
  Serious: No
  Sender: FDA-Public Use
  Company Number: None

PATIENT
  Sex: Female

DRUGS (16)
  1. ALENDRONATE [Concomitant]
     Active Substance: ALENDRONATE SODIUM
  2. PULMOZYME [Suspect]
     Active Substance: DORNASE ALFA
     Indication: CYSTIC FIBROSIS
     Dosage: 2.5MG/2.5ML
     Route: 055
     Dates: start: 20140127
  3. MONISTAT 3 4% CREAM [Concomitant]
  4. COLISTIN [Concomitant]
     Active Substance: COLISTIN
  5. DOXYCYCLINE HYCLATE. [Concomitant]
     Active Substance: DOXYCYCLINE HYCLATE
  6. LAMICTAL [Concomitant]
     Active Substance: LAMOTRIGINE
  7. TRUTEST GLUOSE TRIP [Concomitant]
  8. XOPENEX HFA [Concomitant]
     Active Substance: LEVALBUTEROL TARTRATE
  9. NOVOLOG [Concomitant]
     Active Substance: INSULIN ASPART
  10. TOBI PODHALER [Suspect]
     Active Substance: TOBRAMYCIN
     Indication: CYSTIC FIBROSIS
     Route: 055
     Dates: start: 20140701
  11. VITAMIN D2 [Concomitant]
     Active Substance: ERGOCALCIFEROL
  12. URSODIOL. [Concomitant]
     Active Substance: URSODIOL
  13. LANTUS SOLASTAR [Concomitant]
  14. NACL7% [Concomitant]
  15. IBUPROFEN. [Concomitant]
     Active Substance: IBUPROFEN
  16. CLINDAMYCIN PH 1% SOLUTION [Concomitant]

REACTIONS (1)
  - Hospitalisation [None]

NARRATIVE: CASE EVENT DATE: 2015
